FAERS Safety Report 7954470-2 (Version None)
Quarter: 2011Q4

REPORT INFORMATION
  Report Type: 
  Country: None (occurrence: None)
  Receive Date: 20111202
  Receipt Date: 20111128
  Transmission Date: 20120403
  Serious: Yes (Death, Life-Threatening, Hospitalization)
  Sender: FDA-Public Use
  Company Number: US-CELGENEUS-163-21880-10080231

PATIENT
  Sex: Male

DRUGS (18)
  1. ZOFRAN [Concomitant]
     Indication: NAUSEA
     Dosage: 4 MILLIGRAM
     Route: 048
  2. COMPAZINE [Concomitant]
     Indication: NAUSEA
     Dosage: 10 MILLIGRAM
     Route: 048
  3. FLUIDS [Concomitant]
     Route: 041
     Dates: start: 20100801
  4. REVLIMID [Suspect]
     Indication: DIFFUSE LARGE B-CELL LYMPHOMA
     Dosage: 25 MILLIGRAM
     Route: 048
     Dates: start: 20100801, end: 20100901
  5. IRON SULFATETHIAMIN COMPOUND TAB [Concomitant]
     Dosage: 325 MILLIGRAM
     Route: 048
  6. COLACE [Concomitant]
     Dosage: 100 MILLIGRAM
     Route: 048
  7. PLATELETS [Concomitant]
     Indication: PANCYTOPENIA
     Route: 041
  8. ACETAMINOPHEN [Concomitant]
     Indication: TRANSFUSION
     Route: 065
  9. LORATADINE [Concomitant]
     Dosage: 10 MILLIGRAM
     Route: 048
  10. NEUPOGEN [Concomitant]
     Dosage: 450 MICROGRAM
     Route: 058
  11. FLUTICASONE PROPIONATE [Concomitant]
     Dosage: 1
     Route: 045
  12. NEXIUM [Concomitant]
     Dosage: 40 MILLIGRAM
     Route: 048
  13. BACLOFEN [Concomitant]
     Dosage: 5 MILLIGRAM
     Route: 048
  14. ACETAMINOPHEN [Concomitant]
  15. PREDNISONE TAB [Concomitant]
     Dosage: 10 MILLIGRAM
     Route: 048
  16. WHOLE BLOOD [Concomitant]
     Indication: PANCYTOPENIA
     Route: 041
  17. BENADRYL [Concomitant]
     Indication: TRANSFUSION
     Route: 065
  18. NEURONTIN [Concomitant]
     Dosage: 300 MILLIGRAM
     Route: 048

REACTIONS (3)
  - FEBRILE NEUTROPENIA [None]
  - DIFFUSE LARGE B-CELL LYMPHOMA [None]
  - PNEUMONIA FUNGAL [None]
